FAERS Safety Report 20045780 (Version 1)
Quarter: 2021Q4

REPORT INFORMATION
  Report Type: Spontaneous
  Country: TW (occurrence: TW)
  Receive Date: 20211108
  Receipt Date: 20211108
  Transmission Date: 20220303
  Serious: No
  Sender: FDA-Public Use
  Company Number: TW-PFIZER INC-202101177197

PATIENT
  Age: 11 Year
  Sex: Female

DRUGS (2)
  1. GENOTROPIN [Suspect]
     Active Substance: SOMATROPIN
     Indication: Growth hormone deficiency
     Dosage: 4.3 IU, 1X/DAY
     Route: 058
     Dates: start: 20200719
  2. GENOTROPIN [Suspect]
     Active Substance: SOMATROPIN
     Dosage: 4.5 IU, 1X/DAY
     Route: 058

REACTIONS (2)
  - Poor quality device used [Unknown]
  - Device leakage [Unknown]
